FAERS Safety Report 4659192-1 (Version None)
Quarter: 2005Q2

REPORT INFORMATION
  Report Type: 
  Country: None (occurrence: None)
  Receive Date: 20050510
  Receipt Date: 20050426
  Transmission Date: 20051028
  Serious: Yes (Hospitalization)
  Sender: FDA-Public Use
  Company Number: S05-USA-01466-01

PATIENT
  Age: 79 Year
  Sex: Male

DRUGS (7)
  1. LEXAPRO [Suspect]
     Indication: DEPRESSION
     Dosage: 10 MG QD PO
     Route: 048
     Dates: start: 20040301, end: 20050308
  2. ERYTHROMYCIN [Suspect]
     Indication: SEBORRHOEIC DERMATITIS
     Dosage: 250 MG TID
     Dates: start: 20050221, end: 20050308
  3. NAMENDA [Concomitant]
  4. ATENOLOL [Concomitant]
  5. SYNTHROID [Concomitant]
  6. NEXIUM [Concomitant]
  7. ASPIRIN [Concomitant]

REACTIONS (11)
  - ASTHENIA [None]
  - BALANCE DISORDER [None]
  - BLOOD PRESSURE INCREASED [None]
  - DIZZINESS [None]
  - DRUG INTERACTION [None]
  - FALL [None]
  - HYPERTENSION [None]
  - RIB FRACTURE [None]
  - SEBORRHOEIC DERMATITIS [None]
  - URINARY INCONTINENCE [None]
  - URINARY RETENTION [None]
